FAERS Safety Report 5877041-0 (Version None)
Quarter: 2008Q3

REPORT INFORMATION
  Report Type: 
  Country: None (occurrence: None)
  Receive Date: 20080910
  Receipt Date: 20080902
  Transmission Date: 20090109
  Serious: Yes (Other)
  Sender: FDA-Public Use
  Company Number: PHHY2008FR09120

PATIENT
  Sex: Male

DRUGS (2)
  1. ZOMETA [Suspect]
     Indication: METASTASES TO BONE
     Dosage: UNK
     Route: 042
     Dates: start: 20040401, end: 20070901
  2. DISTILBENE [Concomitant]
     Route: 048

REACTIONS (5)
  - BACTERIAL INFECTION [None]
  - DEBRIDEMENT [None]
  - LACTOBACILLUS INFECTION [None]
  - OSTEONECROSIS [None]
  - TOOTH EXTRACTION [None]
